FAERS Safety Report 15569684 (Version 3)
Quarter: 2020Q3

REPORT INFORMATION
  Report Type: Report from Study
  Country: ES (occurrence: ES)
  Receive Date: 20181031
  Receipt Date: 20190110
  Transmission Date: 20201105
  Serious: Yes (Death, Life-Threatening, Hospitalization)
  Sender: FDA-Public Use
  Company Number: ES-ASTRAZENECA-2018SF42113

PATIENT
  Age: 57 Year
  Sex: Female

DRUGS (23)
  1. ADAVOSERTIB. [Suspect]
     Active Substance: ADAVOSERTIB
     Indication: TRIPLE NEGATIVE BREAST CANCER
     Route: 048
     Dates: start: 20180723, end: 20180725
  2. DEXAMETASONA [Concomitant]
     Active Substance: DEXAMETHASONE
     Indication: TRIPLE NEGATIVE BREAST CANCER
     Route: 048
     Dates: start: 20180830, end: 20180901
  3. OLAPARIB. [Suspect]
     Active Substance: OLAPARIB
     Indication: TRIPLE NEGATIVE BREAST CANCER
     Route: 048
     Dates: start: 20180723, end: 20180812
  4. MASTICAL D [Concomitant]
     Indication: PROPHYLAXIS
     Route: 048
     Dates: start: 20180501
  5. DEXAMETASONA [Concomitant]
     Active Substance: DEXAMETHASONE
     Indication: TRIPLE NEGATIVE BREAST CANCER
     Route: 048
     Dates: start: 20180730, end: 20180801
  6. DEXAMETASONA [Concomitant]
     Active Substance: DEXAMETHASONE
     Indication: TRIPLE NEGATIVE BREAST CANCER
     Route: 048
     Dates: start: 20181008
  7. DEXAMETASONA [Concomitant]
     Active Substance: DEXAMETHASONE
     Indication: TRIPLE NEGATIVE BREAST CANCER
     Route: 048
     Dates: start: 20180723, end: 20180725
  8. OLAPARIB. [Suspect]
     Active Substance: OLAPARIB
     Indication: TRIPLE NEGATIVE BREAST CANCER
     Route: 048
     Dates: start: 20181002, end: 20181022
  9. ADAVOSERTIB. [Suspect]
     Active Substance: ADAVOSERTIB
     Indication: TRIPLE NEGATIVE BREAST CANCER
     Route: 048
     Dates: start: 20180730, end: 20180801
  10. ADAVOSERTIB. [Suspect]
     Active Substance: ADAVOSERTIB
     Indication: TRIPLE NEGATIVE BREAST CANCER
     Route: 048
     Dates: start: 20181009, end: 20181011
  11. LOPERAMIDE [Concomitant]
     Active Substance: LOPERAMIDE
     Indication: CONSTIPATION
     Route: 048
     Dates: start: 2018
  12. DEXAMETASONA [Concomitant]
     Active Substance: DEXAMETHASONE
     Indication: TRIPLE NEGATIVE BREAST CANCER
     Route: 048
     Dates: start: 20180820, end: 20180820
  13. DEXAMETASONA [Concomitant]
     Active Substance: DEXAMETHASONE
     Indication: TRIPLE NEGATIVE BREAST CANCER
     Route: 048
     Dates: start: 20180910, end: 20180912
  14. ADAVOSERTIB. [Suspect]
     Active Substance: ADAVOSERTIB
     Indication: TRIPLE NEGATIVE BREAST CANCER
     Route: 048
     Dates: start: 20180910, end: 20180912
  15. ADAVOSERTIB. [Suspect]
     Active Substance: ADAVOSERTIB
     Indication: TRIPLE NEGATIVE BREAST CANCER
     Route: 048
     Dates: start: 20181002, end: 20181004
  16. PALEXIA [Concomitant]
     Active Substance: TAPENTADOL HYDROCHLORIDE
     Indication: TRIPLE NEGATIVE BREAST CANCER
     Route: 048
     Dates: start: 2018
  17. IBUPROFEN. [Concomitant]
     Active Substance: IBUPROFEN
     Indication: TRIPLE NEGATIVE BREAST CANCER
     Route: 048
     Dates: start: 2018
  18. OLAPARIB. [Suspect]
     Active Substance: OLAPARIB
     Indication: TRIPLE NEGATIVE BREAST CANCER
     Route: 048
     Dates: start: 20180820, end: 20180916
  19. OLAPARIB. [Suspect]
     Active Substance: OLAPARIB
     Indication: TRIPLE NEGATIVE BREAST CANCER
     Route: 048
     Dates: start: 20180910, end: 20181001
  20. OMEPRAZOLE. [Concomitant]
     Active Substance: OMEPRAZOLE
     Indication: ABDOMINAL PAIN UPPER
     Route: 048
     Dates: start: 2018
  21. ADAVOSERTIB. [Suspect]
     Active Substance: ADAVOSERTIB
     Indication: TRIPLE NEGATIVE BREAST CANCER
     Route: 048
     Dates: start: 20180820, end: 20180822
  22. ADAVOSERTIB. [Suspect]
     Active Substance: ADAVOSERTIB
     Indication: TRIPLE NEGATIVE BREAST CANCER
     Route: 048
     Dates: start: 20180827, end: 20180829
  23. ADAVOSERTIB. [Suspect]
     Active Substance: ADAVOSERTIB
     Indication: TRIPLE NEGATIVE BREAST CANCER
     Route: 048
     Dates: start: 20180917, end: 20180919

REACTIONS (1)
  - Disease progression [Fatal]

NARRATIVE: CASE EVENT DATE: 20181024
